FAERS Safety Report 8958164 (Version 2)
Quarter: 2012Q4

REPORT INFORMATION
  Report Type: Report from Study
  Country: US (occurrence: US)
  Receive Date: 20121211
  Receipt Date: 20121213
  Transmission Date: 20130627
  Serious: Yes (Hospitalization)
  Sender: FDA-Public Use
  Company Number: US-JNJFOC-20121202654

PATIENT
  Age: 17 Year
  Sex: Male
  Weight: 66.4 kg

DRUGS (10)
  1. REMICADE [Suspect]
     Indication: INFLAMMATORY BOWEL DISEASE
     Route: 042
     Dates: start: 20061113
  2. METHOTREXATE [Concomitant]
  3. HUMIRA [Concomitant]
  4. ERGOCALCIFEROL [Concomitant]
  5. FOLIC ACID [Concomitant]
  6. HYDROCORTISONE [Concomitant]
  7. FERROUS SULFATE [Concomitant]
  8. LOPERAMIDE [Concomitant]
  9. MULTIVITAMINS [Concomitant]
  10. ANTIBIOTICS [Concomitant]
     Indication: INFLAMMATORY BOWEL DISEASE

REACTIONS (1)
  - Intussusception [Recovered/Resolved]
